FAERS Safety Report 9792430 (Version 1)
Quarter: 2014Q1

REPORT INFORMATION
  Report Type: Spontaneous
  Country: US (occurrence: US)
  Receive Date: 20140102
  Receipt Date: 20140102
  Transmission Date: 20141002
  Serious: No
  Sender: FDA-Public Use
  Company Number: US-BIOGENIDEC-2013BI123543

PATIENT
  Age: 62 Year
  Sex: Female

DRUGS (10)
  1. TECFIDERA [Suspect]
     Indication: MULTIPLE SCLEROSIS
     Route: 048
     Dates: start: 20131221, end: 20131223
  2. RESTORIL [Concomitant]
  3. IMDUR [Concomitant]
  4. CALCIUM ACETATE [Concomitant]
  5. NEURONTIN [Concomitant]
  6. REQUIP [Concomitant]
  7. PRAVACHOL [Concomitant]
  8. PLAVIX [Concomitant]
  9. PAXIL [Concomitant]
  10. METOPROLOL SUCC [Concomitant]

REACTIONS (4)
  - Headache [Unknown]
  - Oral pruritus [Unknown]
  - Diarrhoea [Unknown]
  - Flushing [Unknown]
